FAERS Safety Report 12850759 (Version 1)
Quarter: 2016Q4

REPORT INFORMATION
  Report Type: Report from Study
  Country: US (occurrence: US)
  Receive Date: 20161014
  Receipt Date: 20161014
  Transmission Date: 20170207
  Serious: Yes (Other)
  Sender: FDA-Public Use
  Company Number: US-B.I. PHARMACEUTICALS,INC./RIDGEFIELD-2015-BI-38676BI

PATIENT
  Age: 72 Year
  Sex: Male
  Weight: 84.4 kg

DRUGS (13)
  1. TERAZOSIN [Concomitant]
     Active Substance: TERAZOSIN\TERAZOSIN HYDROCHLORIDE
     Indication: HYPERTENSION
     Route: 048
     Dates: start: 20080101
  2. IMODIUM [Concomitant]
     Active Substance: LOPERAMIDE HYDROCHLORIDE
     Indication: DIARRHOEA
     Route: 048
     Dates: start: 20120813
  3. ELIQUIS [Concomitant]
     Active Substance: APIXABAN
     Indication: ATRIAL FIBRILLATION
     Route: 048
     Dates: start: 20150202
  4. TESTOSTERONE. [Concomitant]
     Active Substance: TESTOSTERONE
     Indication: BLOOD TESTOSTERONE DECREASED
     Route: 030
     Dates: start: 20140401, end: 20150601
  5. ZOLPIDEM [Concomitant]
     Active Substance: ZOLPIDEM\ZOLPIDEM TARTRATE
     Indication: SLEEP DISORDER THERAPY
     Route: 048
     Dates: start: 201207
  6. ELIQUIS [Concomitant]
     Active Substance: APIXABAN
     Indication: THROMBOSIS PROPHYLAXIS
  7. ALLOPURINOL. [Concomitant]
     Active Substance: ALLOPURINOL
     Indication: GOUT
     Route: 048
     Dates: start: 20000101
  8. COENZYME Q10 [Concomitant]
     Active Substance: UBIDECARENONE
     Indication: ROUTINE HEALTH MAINTENANCE
  9. PROBIOTIC [Concomitant]
     Active Substance: PROBIOTICS NOS
     Indication: PROPHYLAXIS
     Dosage: SUPPLEMENT
     Route: 048
     Dates: start: 20141203
  10. VITAMIN D3 [Concomitant]
     Active Substance: CHOLECALCIFEROL
     Indication: VITAMIN D DEFICIENCY
     Route: 048
     Dates: start: 20150401
  11. BIBF 1120 [Suspect]
     Active Substance: NINTEDANIB
     Indication: IDIOPATHIC PULMONARY FIBROSIS
     Route: 065
     Dates: start: 20130506
  12. COENZYME Q10 [Concomitant]
     Active Substance: UBIDECARENONE
     Indication: CARDIOVASCULAR EVENT PROPHYLAXIS
     Route: 048
     Dates: start: 20050101
  13. OXYGEN. [Concomitant]
     Active Substance: OXYGEN
     Indication: DYSPNOEA EXERTIONAL
     Dosage: TOTAL DAILY DOSE: 3-5 L
     Route: 055
     Dates: start: 20130604

REACTIONS (3)
  - Alanine aminotransferase increased [Recovered/Resolved]
  - Cardiac failure congestive [Not Recovered/Not Resolved]
  - Blood bilirubin increased [Recovered/Resolved]

NARRATIVE: CASE EVENT DATE: 20150331
